FAERS Safety Report 13017194 (Version 8)
Quarter: 2017Q3

REPORT INFORMATION
  Report Type: Report from Study
  Country: BR (occurrence: BR)
  Receive Date: 20161212
  Receipt Date: 20170919
  Transmission Date: 20171127
  Serious: Yes (Life-Threatening, Hospitalization, Other)
  Sender: FDA-Public Use
  Company Number: PHHY2016BR169328

PATIENT
  Sex: Female
  Weight: 61.5 kg

DRUGS (1)
  1. SANDOSTATIN LAR DEPOT [Suspect]
     Active Substance: OCTREOTIDE ACETATE
     Indication: NEUROENDOCRINE TUMOUR OF THE LUNG
     Dosage: 30 MG, QMO
     Route: 030
     Dates: start: 20150101

REACTIONS (25)
  - Myalgia [Unknown]
  - Drug hypersensitivity [Unknown]
  - Haemorrhage [Unknown]
  - Memory impairment [Unknown]
  - Weight increased [Unknown]
  - Malaise [Unknown]
  - Vomiting [Unknown]
  - Weight decreased [Unknown]
  - Lung disorder [Unknown]
  - Cough [Not Recovered/Not Resolved]
  - Erythema [Unknown]
  - Pneumonia [Unknown]
  - Feeding disorder [Unknown]
  - Dysphagia [Unknown]
  - Nervousness [Unknown]
  - Haemoptysis [Unknown]
  - Eating disorder [Unknown]
  - Pulmonary oedema [Unknown]
  - Swelling [Unknown]
  - Hypersensitivity [Unknown]
  - Headache [Unknown]
  - Fatigue [Unknown]
  - Back pain [Unknown]
  - Gait inability [Unknown]
  - Confusional state [Unknown]
